FAERS Safety Report 5763914-6 (Version None)
Quarter: 2008Q2

REPORT INFORMATION
  Report Type: 
  Country: None (occurrence: None)
  Receive Date: 20080606
  Receipt Date: 20080606
  Transmission Date: 20081010
  Serious: No
  Sender: FDA-Public Use
  Company Number: None

PATIENT
  Age: 36 Year
  Sex: Female
  Weight: 61.2356 kg

DRUGS (1)
  1. LYBREL [Suspect]
     Indication: ORAL CONTRACEPTION
     Dosage: DAILY PO
     Route: 048
     Dates: start: 20071201, end: 20080315

REACTIONS (1)
  - MENORRHAGIA [None]
